FAERS Safety Report 19919542 (Version 4)
Quarter: 2022Q2

REPORT INFORMATION
  Report Type: Report from Study
  Country: IT (occurrence: IT)
  Receive Date: 20211005
  Receipt Date: 20220506
  Transmission Date: 20220720
  Serious: Yes (Hospitalization, Other)
  Sender: FDA-Public Use
  Company Number: IT-TAKEDA-2021TUS055967

PATIENT
  Age: 75 Year
  Sex: Male

DRUGS (15)
  1. TEDUGLUTIDE [Suspect]
     Active Substance: TEDUGLUTIDE
     Indication: Short-bowel syndrome
     Dosage: 3.5 MILLIGRAM, QD
     Route: 042
     Dates: start: 20190926
  2. TEDUGLUTIDE [Suspect]
     Active Substance: TEDUGLUTIDE
     Indication: Short-bowel syndrome
     Dosage: 3.5 MILLIGRAM, QD
     Route: 042
     Dates: start: 20190926
  3. TEDUGLUTIDE [Suspect]
     Active Substance: TEDUGLUTIDE
     Indication: Short-bowel syndrome
     Dosage: 3.5 MILLIGRAM, QD
     Route: 042
     Dates: start: 20190926
  4. TEDUGLUTIDE [Suspect]
     Active Substance: TEDUGLUTIDE
     Indication: Short-bowel syndrome
     Dosage: 3.5 MILLIGRAM, QD
     Route: 042
     Dates: start: 20190926
  5. COUMADIN [Concomitant]
     Active Substance: WARFARIN SODIUM
     Indication: Prophylaxis
     Dosage: UNK, QD
     Route: 065
     Dates: start: 20201215, end: 20210519
  6. KONAKION [Concomitant]
     Active Substance: PHYTONADIONE
     Indication: Anticoagulation drug level increased
     Dosage: 10 MILLIGRAM
     Route: 048
     Dates: start: 20201214
  7. INSULIN GLARGINE [Concomitant]
     Active Substance: INSULIN GLARGINE
     Indication: Type 2 diabetes mellitus
     Dosage: 15 INTERNATIONAL UNIT
     Route: 042
     Dates: start: 202006
  8. INSULIN GLARGINE [Concomitant]
     Active Substance: INSULIN GLARGINE
     Dosage: 20 INTERNATIONAL UNIT
     Route: 048
     Dates: start: 202110
  9. RAMIPRIL [Concomitant]
     Active Substance: RAMIPRIL
     Indication: Hypertension
     Dosage: 3.5 MILLIGRAM, 1/WEEK
     Dates: start: 20190926
  10. RAMIPRIL [Concomitant]
     Active Substance: RAMIPRIL
     Dosage: 10 MILLIGRAM, QD
     Route: 048
     Dates: start: 202002
  11. CANRENOATE POTASSIUM [Concomitant]
     Active Substance: CANRENOATE POTASSIUM
     Indication: Short-bowel syndrome
     Dosage: 999 UNK
     Route: 048
     Dates: start: 202110
  12. ROVIGON [Concomitant]
     Indication: Short-bowel syndrome
     Dosage: 999 UNK
     Route: 048
     Dates: start: 202110
  13. Cebion [Concomitant]
     Indication: Short-bowel syndrome
     Dosage: UNK
     Route: 048
     Dates: start: 202110
  14. LASIX [Concomitant]
     Active Substance: FUROSEMIDE
     Indication: Diuretic therapy
     Dosage: 25 MILLIGRAM, QD
     Route: 048
     Dates: start: 20200621, end: 20211123
  15. LASIX [Concomitant]
     Active Substance: FUROSEMIDE
     Dosage: 25 MILLIGRAM, BID
     Route: 048
     Dates: start: 20211124

REACTIONS (2)
  - Aphasia [Recovered/Resolved]
  - Thalamic infarction [Recovered/Resolved]

NARRATIVE: CASE EVENT DATE: 20210828
